FAERS Safety Report 9133258 (Version 1)
Quarter: 2013Q1

REPORT INFORMATION
  Report Type: Report from Study
  Country: US (occurrence: US)
  Receive Date: 20130129
  Receipt Date: 20130129
  Transmission Date: 20140127
  Serious: No
  Sender: FDA-Public Use
  Company Number: US-ABBOTT-12P-163-0929193-00

PATIENT
  Sex: Female
  Weight: 63.56 kg

DRUGS (2)
  1. HUMIRA 40 MG/0.8 ML PEN [Suspect]
     Indication: ANKYLOSING SPONDYLITIS
     Route: 058
     Dates: start: 20120416
  2. VOLTAREN [Suspect]
     Indication: ANKYLOSING SPONDYLITIS
     Dates: start: 20120407

REACTIONS (2)
  - Peripheral coldness [Not Recovered/Not Resolved]
  - Drug ineffective [Not Recovered/Not Resolved]
